FAERS Safety Report 17236889 (Version 2)
Quarter: 2020Q2

REPORT INFORMATION
  Report Type: Spontaneous
  Country: US (occurrence: US)
  Receive Date: 20200106
  Receipt Date: 20200506
  Transmission Date: 20200713
  Serious: Yes (Hospitalization, Disabling, Other)
  Sender: FDA-Public Use
  Company Number: US-ASTRAZENECA-2020SE01251

PATIENT
  Age: 600 Month
  Sex: Female
  Weight: 71.2 kg

DRUGS (47)
  1. PROTONIX [Suspect]
     Active Substance: PANTOPRAZOLE SODIUM
     Indication: GASTROOESOPHAGEAL REFLUX DISEASE
     Dosage: GENERIC
     Route: 065
     Dates: start: 201611, end: 201612
  2. RENVELA [Concomitant]
     Active Substance: SEVELAMER CARBONATE
     Indication: BLOOD PHOSPHORUS
     Route: 065
     Dates: start: 201012, end: 201304
  3. PHENTERMINE. [Concomitant]
     Active Substance: PHENTERMINE
  4. LEVOTHYROXINE. [Concomitant]
     Active Substance: LEVOTHYROXINE
  5. TERAZOSIN [Concomitant]
     Active Substance: TERAZOSIN HYDROCHLORIDE
  6. CARVEDILOL. [Concomitant]
     Active Substance: CARVEDILOL
  7. AZITHROMYCIN ANHYDROUS. [Concomitant]
     Active Substance: AZITHROMYCIN ANHYDROUS
  8. ALENDRONATE [Concomitant]
     Active Substance: ALENDRONATE SODIUM
  9. VESICARE [Concomitant]
     Active Substance: SOLIFENACIN SUCCINATE
  10. SULFAMETHOXAZOLE-TRIMETHOPRIM [Concomitant]
     Active Substance: SULFAMETHOXAZOLE\TRIMETHOPRIM
  11. NEXIUM [Suspect]
     Active Substance: ESOMEPRAZOLE MAGNESIUM
     Indication: GASTROOESOPHAGEAL REFLUX DISEASE
     Route: 048
     Dates: start: 200611, end: 2011
  12. SIMVASTATIN. [Concomitant]
     Active Substance: SIMVASTATIN
     Indication: BLOOD CHOLESTEROL ABNORMAL
     Route: 065
     Dates: start: 201111, end: 201404
  13. PRISTIQ EXTENDED-RELEASE [Concomitant]
     Active Substance: DESVENLAFAXINE SUCCINATE
     Indication: AFFECTIVE DISORDER
     Route: 065
     Dates: start: 201109, end: 201201
  14. PIROXICAM. [Concomitant]
     Active Substance: PIROXICAM
  15. METHYLDOPA. [Concomitant]
     Active Substance: METHYLDOPA
  16. LEXAPRO [Concomitant]
     Active Substance: ESCITALOPRAM OXALATE
  17. NEXIUM [Suspect]
     Active Substance: ESOMEPRAZOLE MAGNESIUM
     Indication: GASTROOESOPHAGEAL REFLUX DISEASE
     Route: 048
     Dates: start: 2006, end: 2016
  18. PROTONIX [Suspect]
     Active Substance: PANTOPRAZOLE SODIUM
     Indication: GASTROOESOPHAGEAL REFLUX DISEASE
     Route: 048
     Dates: start: 20111220
  19. CATAPRES [Concomitant]
     Active Substance: CLONIDINE HYDROCHLORIDE
     Indication: BLOOD PRESSURE ABNORMAL
     Route: 065
     Dates: start: 201009, end: 201012
  20. BUPROPION. [Concomitant]
     Active Substance: BUPROPION
     Indication: MOOD ALTERED
     Route: 065
     Dates: start: 201103, end: 201107
  21. CRESTOR [Concomitant]
     Active Substance: ROSUVASTATIN CALCIUM
  22. CIPROFLOXACIN. [Concomitant]
     Active Substance: CIPROFLOXACIN
  23. CHOLESTYRAMINE. [Concomitant]
     Active Substance: CHOLESTYRAMINE
  24. NABUMETONE. [Concomitant]
     Active Substance: NABUMETONE
  25. PROTONIX [Suspect]
     Active Substance: PANTOPRAZOLE SODIUM
     Indication: GASTROOESOPHAGEAL REFLUX DISEASE
     Dosage: GENERIC
     Route: 065
     Dates: start: 201112, end: 201604
  26. PREMARIN [Concomitant]
     Active Substance: ESTROGENS, CONJUGATED
     Indication: HORMONE LEVEL ABNORMAL
     Route: 065
     Dates: start: 201009, end: 201202
  27. PROVENTIL HFA [Concomitant]
     Active Substance: ALBUTEROL SULFATE
  28. METRONIDAZOLE. [Concomitant]
     Active Substance: METRONIDAZOLE
  29. APRESOLINE HYDROCHLORIDE [Concomitant]
     Active Substance: HYDRALAZINE HYDROCHLORIDE
     Indication: VASODILATATION
     Route: 065
     Dates: start: 201011, end: 201705
  30. PLAVIX [Concomitant]
     Active Substance: CLOPIDOGREL BISULFATE
  31. METRONIDAZOLE. [Concomitant]
     Active Substance: METRONIDAZOLE
  32. LOSARTAN. [Concomitant]
     Active Substance: LOSARTAN
  33. KLOR-CON [Concomitant]
     Active Substance: POTASSIUM CHLORIDE
  34. PHENAZOPYRIDINE. [Concomitant]
     Active Substance: PHENAZOPYRIDINE
  35. PHENAZOPYRIDINE. [Concomitant]
     Active Substance: PHENAZOPYRIDINE
  36. TRIMETHOBENZAMIDE [Concomitant]
     Active Substance: TRIMETHOBENZAMIDE
  37. VALIUM [Concomitant]
     Active Substance: DIAZEPAM
     Indication: ANXIETY
     Route: 065
     Dates: start: 201109, end: 201705
  38. ASPIRIN. [Concomitant]
     Active Substance: ASPIRIN
  39. KEFLEX [Concomitant]
     Active Substance: CEPHALEXIN
  40. IMDUR [Concomitant]
     Active Substance: ISOSORBIDE MONONITRATE
     Indication: VASODILATATION
     Route: 065
     Dates: start: 201011, end: 201705
  41. VITAMIN C [Concomitant]
     Active Substance: ASCORBIC ACID
  42. NORCO [Concomitant]
     Active Substance: ACETAMINOPHEN\HYDROCODONE BITARTRATE
  43. AMLODIPINE BESYLATE. [Concomitant]
     Active Substance: AMLODIPINE BESYLATE
  44. SPIRONOLACTONE. [Concomitant]
     Active Substance: SPIRONOLACTONE
  45. BYSTOLIC [Concomitant]
     Active Substance: NEBIVOLOL HYDROCHLORIDE
     Indication: BLOOD PRESSURE ABNORMAL
     Route: 065
     Dates: start: 201009, end: 201012
  46. NITROSTAT [Concomitant]
     Active Substance: NITROGLYCERIN
  47. CEFUROXIME. [Concomitant]
     Active Substance: CEFUROXIME

REACTIONS (3)
  - Chronic kidney disease [Not Recovered/Not Resolved]
  - Renal failure [Unknown]
  - Acute kidney injury [Not Recovered/Not Resolved]

NARRATIVE: CASE EVENT DATE: 201008
